FAERS Safety Report 19860024 (Version 2)
Quarter: 2022Q1

REPORT INFORMATION
  Report Type: Report from Study
  Country: US (occurrence: US)
  Receive Date: 20210920
  Receipt Date: 20220118
  Transmission Date: 20220423
  Serious: Yes (Other)
  Sender: FDA-Public Use
  Company Number: US-NPS_PHARMACEUTICALS-001412

PATIENT
  Age: 40 Year
  Sex: Female
  Weight: 59 kg

DRUGS (38)
  1. TEDUGLUTIDE [Suspect]
     Active Substance: TEDUGLUTIDE
     Indication: Short-bowel syndrome
     Dosage: UNK UNK, OTHER
     Route: 058
     Dates: start: 20130801, end: 201308
  2. TEDUGLUTIDE [Suspect]
     Active Substance: TEDUGLUTIDE
     Indication: Short-bowel syndrome
     Dosage: UNK UNK, OTHER
     Route: 058
     Dates: start: 20130801, end: 201308
  3. TEDUGLUTIDE [Suspect]
     Active Substance: TEDUGLUTIDE
     Indication: Short-bowel syndrome
     Dosage: UNK UNK, OTHER
     Route: 058
     Dates: start: 20130801, end: 201308
  4. TEDUGLUTIDE [Suspect]
     Active Substance: TEDUGLUTIDE
     Indication: Short-bowel syndrome
     Dosage: UNK UNK, OTHER
     Route: 058
     Dates: start: 20130801, end: 201308
  5. TEDUGLUTIDE [Suspect]
     Active Substance: TEDUGLUTIDE
     Dosage: UNK UNK, OTHER
     Route: 058
     Dates: start: 20130901, end: 201407
  6. TEDUGLUTIDE [Suspect]
     Active Substance: TEDUGLUTIDE
     Dosage: UNK UNK, OTHER
     Route: 058
     Dates: start: 20130901, end: 201407
  7. TEDUGLUTIDE [Suspect]
     Active Substance: TEDUGLUTIDE
     Dosage: UNK UNK, OTHER
     Route: 058
     Dates: start: 20130901, end: 201407
  8. TEDUGLUTIDE [Suspect]
     Active Substance: TEDUGLUTIDE
     Dosage: UNK UNK, OTHER
     Route: 058
     Dates: start: 20130901, end: 201407
  9. TEDUGLUTIDE [Suspect]
     Active Substance: TEDUGLUTIDE
     Dosage: 3 MILLIGRAM, QD
     Route: 058
     Dates: start: 20140819, end: 20140903
  10. TEDUGLUTIDE [Suspect]
     Active Substance: TEDUGLUTIDE
     Dosage: 3 MILLIGRAM, QD
     Route: 058
     Dates: start: 20140819, end: 20140903
  11. TEDUGLUTIDE [Suspect]
     Active Substance: TEDUGLUTIDE
     Dosage: 3 MILLIGRAM, QD
     Route: 058
     Dates: start: 20140819, end: 20140903
  12. TEDUGLUTIDE [Suspect]
     Active Substance: TEDUGLUTIDE
     Dosage: 3 MILLIGRAM, QD
     Route: 058
     Dates: start: 20140819, end: 20140903
  13. TEDUGLUTIDE [Suspect]
     Active Substance: TEDUGLUTIDE
     Dosage: 3 MILLIGRAM
     Route: 065
     Dates: start: 20140914
  14. TEDUGLUTIDE [Suspect]
     Active Substance: TEDUGLUTIDE
     Dosage: 3 MILLIGRAM
     Route: 065
     Dates: start: 20140914
  15. TEDUGLUTIDE [Suspect]
     Active Substance: TEDUGLUTIDE
     Dosage: 3 MILLIGRAM
     Route: 065
     Dates: start: 20140914
  16. TEDUGLUTIDE [Suspect]
     Active Substance: TEDUGLUTIDE
     Dosage: 3 MILLIGRAM
     Route: 065
     Dates: start: 20140914
  17. PN/IV [Concomitant]
     Indication: Medical diet
     Dosage: 0.31 L, THREE TIMES WEEKLY
     Dates: start: 20140510
  18. PN/IV [Concomitant]
     Dosage: 0.41 L,  THREE TIMES WEEKLY
     Dates: start: 20140419, end: 20140510
  19. PN/IV [Concomitant]
     Dosage: 1.01 L, UNK
     Dates: start: 20130122, end: 20131012
  20. PN/IV [Concomitant]
     Dosage: 0.81 L, 1X/DAY:QD
     Dates: start: 20131012, end: 20140419
  21. AMITRIPTYLINE [Concomitant]
     Active Substance: AMITRIPTYLINE
     Indication: Depression
     Dosage: 100 MG ONCE A DAY
     Route: 048
  22. POTASSIUM CHLORIDE [Concomitant]
     Active Substance: POTASSIUM CHLORIDE
     Indication: Hypokalaemia
     Dosage: DF, BID
  23. CALCIUM CARBONATE\VITAMIN D [Concomitant]
     Active Substance: CALCIUM CARBONATE\VITAMIN D
     Indication: Nutritional supplementation
     Dosage: 500 MG ONCE A DAY
     Route: 048
  24. BACLOFEN [Concomitant]
     Active Substance: BACLOFEN
     Indication: Back pain
     Dosage: 20 MG QID
     Route: 048
     Dates: start: 200909
  25. ACETAMINOPHEN\OXYCODONE HYDROCHLORIDE\OXYCODONE TEREPHTHALATE [Concomitant]
     Active Substance: ACETAMINOPHEN\OXYCODONE HYDROCHLORIDE\OXYCODONE TEREPHTHALATE
     Indication: Back pain
     Dosage: 10 MG PRN
     Route: 048
     Dates: start: 20090420
  26. VITAMIN D NOS [Concomitant]
     Active Substance: VITAMIN D NOS
     Indication: Nutritional supplementation
     Dosage: 50000 UNITS, WEEKLY
     Route: 048
  27. METHADONE HYDROCHLORIDE [Concomitant]
     Active Substance: METHADONE HYDROCHLORIDE
     Indication: Pain
     Dosage: DF
  28. JOLESSA [Concomitant]
     Active Substance: ETHINYL ESTRADIOL\LEVONORGESTREL
     Indication: Contraception
     Dosage: 0.15 MG ONCE A DAY
     Route: 048
     Dates: start: 20120312
  29. WARFARIN SODIUM [Concomitant]
     Active Substance: WARFARIN SODIUM
     Indication: Prophylaxis
     Dosage: 1 MG ONCE A DAY
     Route: 048
     Dates: start: 20101010
  30. OMEPRAZOLE [Concomitant]
     Active Substance: OMEPRAZOLE
     Indication: Gastrooesophageal reflux disease
     Dosage: 40 MG ONCE A DAY
     Route: 048
  31. IMODIUM [Concomitant]
     Active Substance: LOPERAMIDE HYDROCHLORIDE
     Indication: Diarrhoea
     Dosage: 2 MG:8 TIMES A DAY
     Route: 048
  32. LYRICA [Concomitant]
     Active Substance: PREGABALIN
     Indication: Back pain
     Dosage: 100 MG ONCE A DAY
     Route: 048
     Dates: start: 20100315
  33. SYMBICORT [Concomitant]
     Active Substance: BUDESONIDE\FORMOTEROL FUMARATE DIHYDRATE
     Indication: Dyspnoea
     Dosage: 2 DOSAGE FORM, BID
     Route: 055
     Dates: start: 2021
  34. SYMBICORT [Concomitant]
     Active Substance: BUDESONIDE\FORMOTEROL FUMARATE DIHYDRATE
     Indication: Asthma
  35. ALBUTEROL SULFATE [Concomitant]
     Active Substance: ALBUTEROL SULFATE
     Indication: Dyspnoea
     Dosage: 2 DOSAGE FORM, PRN
     Route: 055
     Dates: start: 2021
  36. ALBUTEROL SULFATE [Concomitant]
     Active Substance: ALBUTEROL SULFATE
     Indication: Asthma
  37. VITAMIN E [Concomitant]
     Active Substance: .ALPHA.-TOCOPHEROL
     Indication: Vitamin E deficiency
     Dosage: 400 INTERNATIONAL UNIT, QD
     Route: 048
     Dates: start: 202001
  38. VITAMIN A [Concomitant]
     Active Substance: VITAMIN A
     Indication: Vitamin A deficiency
     Dosage: 2400 MICROGRAM, BID
     Route: 048
     Dates: start: 202001

REACTIONS (1)
  - Stoma obstruction [Recovered/Resolved]

NARRATIVE: CASE EVENT DATE: 20140719
